FAERS Safety Report 20459589 (Version 1)
Quarter: 2022Q1

REPORT INFORMATION
  Report Type: Spontaneous
  Country: US (occurrence: US)
  Receive Date: 20220211
  Receipt Date: 20220211
  Transmission Date: 20220424
  Serious: No
  Sender: FDA-Public Use
  Company Number: US-HORIZON THERAPEUTICS-HZN-2021-009686

PATIENT
  Sex: Female

DRUGS (2)
  1. TEPEZZA [Suspect]
     Active Substance: TEPROTUMUMAB-TRBW
     Indication: Endocrine ophthalmopathy
     Dosage: UNK
     Route: 042
  2. TEPEZZA [Suspect]
     Active Substance: TEPROTUMUMAB-TRBW
     Dosage: UNK (3RD INFUSION)
     Route: 042

REACTIONS (7)
  - Constipation [Unknown]
  - Anxiety [Unknown]
  - Menstruation delayed [Unknown]
  - Dysgeusia [Unknown]
  - Nausea [Unknown]
  - Alopecia [Unknown]
  - Taste disorder [Unknown]
